FAERS Safety Report 15339787 (Version 1)
Quarter: 2018Q3

REPORT INFORMATION
  Report Type: Spontaneous
  Country: SA (occurrence: SA)
  Receive Date: 20180831
  Receipt Date: 20180831
  Transmission Date: 20181010
  Serious: Yes (Other)
  Sender: FDA-Public Use
  Company Number: PHHY2018SA079860

PATIENT
  Age: 26 Year
  Sex: Male

DRUGS (2)
  1. PREDNISOLONE ACETATE. [Concomitant]
     Active Substance: PREDNISOLONE ACETATE
     Indication: KERATOCONUS
     Dosage: FOUR TIMES DAILY FOR TWO WEEKS
     Route: 061
  2. VIGAMOX [Suspect]
     Active Substance: MOXIFLOXACIN HYDROCHLORIDE
     Indication: KERATOCONUS
     Dosage: EVERY TWO HOURS IN THE RIGHT EYE
     Route: 061

REACTIONS (3)
  - Corneal deposits [Recovered/Resolved]
  - Vision blurred [Recovered/Resolved]
  - Inappropriate schedule of drug administration [Recovered/Resolved]
